FAERS Safety Report 19553317 (Version 1)
Quarter: 2021Q3

REPORT INFORMATION
  Report Type: Spontaneous
  Country: US (occurrence: US)
  Receive Date: 20210714
  Receipt Date: 20210714
  Transmission Date: 20211014
  Serious: Yes (Other)
  Sender: FDA-Public Use
  Company Number: US-UCBSA-2021031889

PATIENT
  Age: 60 Year
  Sex: Female

DRUGS (7)
  1. SODIUM VALPROATE [Suspect]
     Active Substance: VALPROATE SODIUM
     Indication: PARTIAL SEIZURES
  2. METHYLPREDNISOLONE. [Suspect]
     Active Substance: METHYLPREDNISOLONE
     Indication: STROKE-LIKE MIGRAINE ATTACKS AFTER RADIATION THERAPY
     Dosage: 1 GRAM EV
  3. LEVETIRACETAM. [Suspect]
     Active Substance: LEVETIRACETAM
     Dosage: 1.5 GRAM, 2X/DAY (BID)
     Route: 042
  4. IMMUNOGLOBULINS NOS [Suspect]
     Active Substance: IMMUNE GLOBULIN NOS
     Indication: STROKE-LIKE MIGRAINE ATTACKS AFTER RADIATION THERAPY
     Dosage: 2 GRAMS/KILOGRA
  5. LEVETIRACETAM. [Suspect]
     Active Substance: LEVETIRACETAM
     Indication: PRODUCT USED FOR UNKNOWN INDICATION
     Dosage: 1 GRAM, 2X/DAY (BID)
     Route: 042
  6. PHENYTOIN. [Suspect]
     Active Substance: PHENYTOIN
     Indication: STROKE-LIKE MIGRAINE ATTACKS AFTER RADIATION THERAPY
     Dosage: 100 MILLIGRAM, 2X/DAY (BID)
  7. SODIUM VALPROATE [Suspect]
     Active Substance: VALPROATE SODIUM
     Indication: STROKE-LIKE MIGRAINE ATTACKS AFTER RADIATION THERAPY
     Dosage: 400 MILLIGRAM, 3X/DAY (TID)

REACTIONS (4)
  - Generalised tonic-clonic seizure [Recovered/Resolved]
  - Multiple-drug resistance [Unknown]
  - Myoclonic epilepsy [Recovering/Resolving]
  - Partial seizures [Recovering/Resolving]
